FAERS Safety Report 10285762 (Version 5)
Quarter: 2014Q4

REPORT INFORMATION
  Report Type: Report from Study
  Country: CA (occurrence: CA)
  Receive Date: 20140709
  Receipt Date: 20141114
  Transmission Date: 20150528
  Serious: Yes (Other)
  Sender: FDA-Public Use
  Company Number: CA-BRISTOL-MYERS SQUIBB COMPANY-21172168

PATIENT
  Age: 82 Year
  Sex: Female

DRUGS (10)
  1. ORENCIA [Suspect]
     Active Substance: ABATACEPT
     Indication: RHEUMATOID ARTHRITIS
     Dosage: INTER ON JUN14
     Route: 042
     Dates: start: 20091008
  2. LYRICA [Concomitant]
     Active Substance: PREGABALIN
  3. PREDNISONE. [Concomitant]
     Active Substance: PREDNISONE
  4. HYDROXYCHLOROQUINE [Concomitant]
     Active Substance: HYDROXYCHLOROQUINE
  5. METHOTREXATE [Concomitant]
     Active Substance: METHOTREXATE
  6. LOSEC [Concomitant]
     Active Substance: OMEPRAZOLE
  7. ALENDRONATE [Concomitant]
     Active Substance: ALENDRONATE SODIUM
  8. PREMARIN [Concomitant]
     Active Substance: ESTROGENS, CONJUGATED
  9. CALCIUM [Concomitant]
     Active Substance: CALCIUM
  10. VITAMIN D [Concomitant]
     Active Substance: CHOLECALCIFEROL

REACTIONS (8)
  - Hernia [Unknown]
  - Pain [Unknown]
  - Rib fracture [Unknown]
  - Bronchitis [Not Recovered/Not Resolved]
  - Lower respiratory tract infection [Not Recovered/Not Resolved]
  - Inflammation [Unknown]
  - Cough [Unknown]
  - Lung infection [Unknown]

NARRATIVE: CASE EVENT DATE: 2014
